FAERS Safety Report 15470567 (Version 2)
Quarter: 2018Q4

REPORT INFORMATION
  Report Type: Spontaneous
  Country: US (occurrence: US)
  Receive Date: 20181005
  Receipt Date: 20181205
  Transmission Date: 20190205
  Serious: Yes (Hospitalization)
  Sender: FDA-Public Use
  Company Number: US-BIOGEN-2014BI001361

PATIENT
  Age: 60 Year
  Sex: Male

DRUGS (2)
  1. AVONEX [Suspect]
     Active Substance: INTERFERON BETA-1A
     Route: 030
  2. AVONEX [Suspect]
     Active Substance: INTERFERON BETA-1A
     Indication: MULTIPLE SCLEROSIS
     Route: 030
     Dates: start: 19980101

REACTIONS (16)
  - Loss of consciousness [Unknown]
  - Hypotension [Unknown]
  - Back injury [Recovered/Resolved]
  - Ligament sprain [Unknown]
  - Feeling hot [Recovered/Resolved with Sequelae]
  - Fall [Recovered/Resolved]
  - Optic neuritis [Recovered/Resolved]
  - Foot fracture [Unknown]
  - Mental fatigue [Not Recovered/Not Resolved]
  - Paraesthesia [Recovered/Resolved with Sequelae]
  - Inappropriate schedule of product administration [Unknown]
  - Knee operation [Recovered/Resolved]
  - Hyperhidrosis [Recovered/Resolved with Sequelae]
  - Humerus fracture [Not Recovered/Not Resolved]
  - Haematology test abnormal [Unknown]
  - Hypertension [Recovered/Resolved]

NARRATIVE: CASE EVENT DATE: 2012
